FAERS Safety Report 8186733-2 (Version None)
Quarter: 2012Q1

REPORT INFORMATION
  Report Type: 
  Country: None (occurrence: None)
  Receive Date: 20120306
  Receipt Date: 20120225
  Transmission Date: 20120608
  Serious: Yes (Hospitalization)
  Sender: FDA-Public Use
  Company Number: US-BRISTOL-MYERS SQUIBB COMPANY-16284580

PATIENT
  Age: 49 Year
  Sex: Male
  Weight: 105 kg

DRUGS (1)
  1. IPILIMUMAB [Suspect]
     Indication: MALIGNANT MELANOMA
     Dosage: LAST DOSE:29NOV2011,10MG/KG OVER 90MIN,Q3 WEEKS*4DOSES,Q12WEEKS ON WEEKS 24,36,48,60
     Route: 042
     Dates: start: 20111107

REACTIONS (1)
  - HEADACHE [None]
